FAERS Safety Report 5178249-2 (Version None)
Quarter: 2006Q4

REPORT INFORMATION
  Report Type: 
  Country: None (occurrence: None)
  Receive Date: 20061218
  Receipt Date: 20060810
  Transmission Date: 20070319
  Serious: No
  Sender: FDA-Public Use
  Company Number: US-AMGEN-KDL189761

PATIENT
  Sex: Male

DRUGS (3)
  1. ENBREL [Suspect]
     Indication: ANKYLOSING SPONDYLITIS
     Route: 058
     Dates: start: 20060627
  2. FLEXERIL [Concomitant]
     Dates: start: 20060501
  3. DICLOFENAC SODIUM [Concomitant]
     Dates: start: 20060815

REACTIONS (4)
  - ARTHRALGIA [None]
  - COUGH [None]
  - NASOPHARYNGITIS [None]
  - RESPIRATORY TRACT CONGESTION [None]
